FAERS Safety Report 10376419 (Version 2)
Quarter: 2014Q4

REPORT INFORMATION
  Report Type: Spontaneous
  Country: US (occurrence: US)
  Receive Date: 20140811
  Receipt Date: 20141029
  Transmission Date: 20150528
  Serious: Yes (Other)
  Sender: FDA-Public Use
  Company Number: US-TEVA-499686USA

PATIENT
  Age: 34 Year
  Sex: Male

DRUGS (2)
  1. COPAXONE [Suspect]
     Active Substance: GLATIRAMER ACETATE
     Indication: MULTIPLE SCLEROSIS
     Dosage: UNKNOWN
     Route: 065
  2. BETASERON [Suspect]
     Active Substance: INTERFERON BETA-1B
     Indication: MULTIPLE SCLEROSIS
     Route: 065

REACTIONS (8)
  - Peroneal nerve palsy [Unknown]
  - Multiple sclerosis [Unknown]
  - Abnormal behaviour [Unknown]
  - Nephrolithiasis [Unknown]
  - Cholecystectomy [Unknown]
  - Testicular torsion [Unknown]
  - Tooth extraction [Unknown]
  - Thinking abnormal [Unknown]
